FAERS Safety Report 13853452 (Version 1)
Quarter: 2017Q3

REPORT INFORMATION
  Report Type: Spontaneous
  Country: FR (occurrence: FR)
  Receive Date: 20170810
  Receipt Date: 20170810
  Transmission Date: 20171127
  Serious: Yes (Hospitalization)
  Sender: FDA-Public Use
  Company Number: FR-EISAI MEDICAL RESEARCH-EC-2017-029987

PATIENT
  Age: 27 Year
  Sex: Male

DRUGS (12)
  1. LAMICTAL [Suspect]
     Active Substance: LAMOTRIGINE
     Indication: POST-TRAUMATIC EPILEPSY
     Dosage: 300 MG IN THE MORNING, 200 MG IN THE EVENING
     Route: 048
  2. URBANYL [Suspect]
     Active Substance: CLOBAZAM
     Indication: POST-TRAUMATIC EPILEPSY
     Dosage: 10 MG IN THE MORNING AND AT NOON, 15 MG IN THE EVENING
     Route: 048
     Dates: end: 2017
  3. DUPHALAC [Concomitant]
     Active Substance: LACTULOSE
     Indication: PRODUCT USED FOR UNKNOWN INDICATION
  4. DEPAKINE CHRONO [Suspect]
     Active Substance: VALPROATE SODIUM
     Dosage: DOSE REDUCED
     Route: 048
     Dates: start: 2017
  5. SEROPLEX [Concomitant]
     Active Substance: ESCITALOPRAM OXALATE
     Indication: PRODUCT USED FOR UNKNOWN INDICATION
     Dates: end: 20170711
  6. MOTILIUM [Concomitant]
     Active Substance: DOMPERIDONE
     Indication: PRODUCT USED FOR UNKNOWN INDICATION
  7. VIMPAT [Suspect]
     Active Substance: LACOSAMIDE
     Indication: POST-TRAUMATIC EPILEPSY
     Route: 048
     Dates: start: 201601, end: 2017
  8. VIMPAT [Suspect]
     Active Substance: LACOSAMIDE
     Route: 048
     Dates: start: 2017
  9. DEPAKINE CHRONO [Suspect]
     Active Substance: VALPROATE SODIUM
     Indication: POST-TRAUMATIC EPILEPSY
     Route: 048
     Dates: end: 2017
  10. TEMESTA [Concomitant]
     Active Substance: LORAZEPAM
     Indication: PRODUCT USED FOR UNKNOWN INDICATION
     Dates: end: 20170711
  11. INOVELON [Suspect]
     Active Substance: RUFINAMIDE
     Indication: POST-TRAUMATIC EPILEPSY
     Dosage: 1400 MG
     Route: 048
  12. URBANYL [Suspect]
     Active Substance: CLOBAZAM
     Dosage: DOSE REDUCED
     Route: 048
     Dates: start: 2017

REACTIONS (3)
  - Hyperammonaemia [Unknown]
  - Cerebellar syndrome [Unknown]
  - Nystagmus [Unknown]

NARRATIVE: CASE EVENT DATE: 2017
